FAERS Safety Report 9892815 (Version 2)
Quarter: 2014Q1

REPORT INFORMATION
  Report Type: Report from Study
  Country: AU (occurrence: AU)
  Receive Date: 20140213
  Receipt Date: 20140219
  Transmission Date: 20141002
  Serious: Yes (Death, Other)
  Sender: FDA-Public Use
  Company Number: AU-ROCHE-1343901

PATIENT
  Age: 65 Year
  Sex: Female
  Weight: 56 kg

DRUGS (1)
  1. KADCYLA [Suspect]
     Indication: BREAST CANCER METASTATIC
     Route: 042
     Dates: start: 20140107, end: 20140107

REACTIONS (2)
  - Death [Fatal]
  - Disease progression [Unknown]
